FAERS Safety Report 7207271-7 (Version None)
Quarter: 2011Q1

REPORT INFORMATION
  Report Type: 
  Country: None (occurrence: None)
  Receive Date: 20110103
  Receipt Date: 20101227
  Transmission Date: 20110831
  Serious: Yes (Life-Threatening, Hospitalization, Other)
  Sender: FDA-Public Use
  Company Number: FR-BRISTOL-MYERS SQUIBB COMPANY-15466782

PATIENT
  Age: 75 Year
  Sex: Male

DRUGS (5)
  1. LEVOTHYROX [Concomitant]
  2. GLYBURIDE [Concomitant]
  3. TAHOR [Concomitant]
  4. KARDEGIC [Concomitant]
  5. GLUCOPHAGE [Suspect]
     Indication: TYPE 2 DIABETES MELLITUS
     Route: 048

REACTIONS (4)
  - VENTRICULAR EXTRASYSTOLES [None]
  - LACTIC ACIDOSIS [None]
  - BRADYCARDIA [None]
  - RENAL FAILURE ACUTE [None]
